FAERS Safety Report 22611030 (Version 1)
Quarter: 2023Q2

REPORT INFORMATION
  Report Type: Spontaneous
  Country: CN (occurrence: CN)
  Receive Date: 20230616
  Receipt Date: 20230616
  Transmission Date: 20230722
  Serious: Yes (Hospitalization)
  Sender: FDA-Public Use
  Company Number: CN-JNJFOC-20230631830

PATIENT
  Age: 20 Year
  Sex: Male
  Weight: 68.6 kg

DRUGS (3)
  1. MOTILIUM [Suspect]
     Active Substance: DOMPERIDONE
     Indication: Gastroenteritis viral
     Route: 048
     Dates: start: 20230601, end: 20230601
  2. IMODIUM [Suspect]
     Active Substance: LOPERAMIDE HYDROCHLORIDE
     Indication: Gastroenteritis viral
     Route: 048
     Dates: start: 20230601, end: 20230601
  3. PEI FEI KANG [Concomitant]
     Indication: Gastroenteritis viral
     Route: 048
     Dates: start: 20230601, end: 20230601

REACTIONS (6)
  - Generalised oedema [Recovering/Resolving]
  - Blood pressure decreased [Recovered/Resolved]
  - Tachypnoea [Recovering/Resolving]
  - Pharyngeal oedema [Recovering/Resolving]
  - Swelling face [Recovering/Resolving]
  - Rash [Recovering/Resolving]

NARRATIVE: CASE EVENT DATE: 20230601
